FAERS Safety Report 25361374 (Version 1)
Quarter: 2025Q2

REPORT INFORMATION
  Report Type: Spontaneous
  Country: ES (occurrence: ES)
  Receive Date: 20250527
  Receipt Date: 20250527
  Transmission Date: 20250716
  Serious: Yes (Other)
  Sender: AUROBINDO
  Company Number: ES-UCBSA-2025027112

PATIENT
  Age: 4 Year
  Sex: Female

DRUGS (2)
  1. LEVETIRACETAM [Suspect]
     Active Substance: LEVETIRACETAM
     Indication: Product used for unknown indication
     Route: 065
  2. LACOSAMIDE [Suspect]
     Active Substance: LACOSAMIDE
     Indication: Product used for unknown indication
     Route: 065

REACTIONS (6)
  - Petit mal epilepsy [Unknown]
  - Partial seizures [Unknown]
  - Tonic convulsion [Unknown]
  - Generalised tonic-clonic seizure [Unknown]
  - Cognitive disorder [Unknown]
  - Motor dysfunction [Unknown]
